FAERS Safety Report 5758732-9 (Version None)
Quarter: 2008Q2

REPORT INFORMATION
  Report Type: 
  Country: None (occurrence: None)
  Receive Date: 20080507
  Receipt Date: 20070612
  Transmission Date: 20081010
  Serious: Yes (Hospitalization)
  Sender: FDA-Public Use
  Company Number: 234780K07USA

PATIENT
  Age: 48 Year
  Sex: Male
  Weight: 84.8226 kg

DRUGS (5)
  1. REBIF [Suspect]
     Indication: MULTIPLE SCLEROSIS
     Dosage: 44 MCG, 3 IN 1 WEEKS, SUBCUTANEOUS
     Route: 058
     Dates: start: 20041007
  2. AMANTADINE (AMANTADINE /00055901/) [Concomitant]
  3. PROVIGIL [Concomitant]
  4. BACLOFEN [Concomitant]
  5. DIAZEPAM [Concomitant]

REACTIONS (13)
  - ALOPECIA [None]
  - CENTRAL NERVOUS SYSTEM LESION [None]
  - FALL [None]
  - HYPOAESTHESIA FACIAL [None]
  - INJECTION [None]
  - INJECTION SITE HAEMORRHAGE [None]
  - INJECTION SITE PAIN [None]
  - INJECTION SITE REACTION [None]
  - MULTIPLE SCLEROSIS RELAPSE [None]
  - NAUSEA [None]
  - SPEECH DISORDER [None]
  - VOMITING [None]
  - WALKING DISABILITY [None]
